FAERS Safety Report 11146344 (Version 2)
Quarter: 2015Q3

REPORT INFORMATION
  Report Type: Report from Study
  Country: US (occurrence: US)
  Receive Date: 20150528
  Receipt Date: 20150708
  Transmission Date: 20151125
  Serious: Yes (Hospitalization, Other)
  Sender: FDA-Public Use
  Company Number: US-GILEAD-2015-0155221

PATIENT
  Age: 53 Year
  Sex: Female

DRUGS (2)
  1. AMBRISENTAN [Suspect]
     Active Substance: AMBRISENTAN
     Indication: PULMONARY HYPERTENSION
     Dosage: 10 MG, QD
     Route: 065
     Dates: start: 20130718
  2. ADEMPAS [Concomitant]
     Active Substance: RIOCIGUAT

REACTIONS (6)
  - Deep vein thrombosis [Unknown]
  - Vomiting [Unknown]
  - Tachycardia [Unknown]
  - Oedema peripheral [Unknown]
  - Dyspnoea [Unknown]
  - Pain in extremity [Unknown]

NARRATIVE: CASE EVENT DATE: 20150520
